FAERS Safety Report 5621692-5 (Version None)
Quarter: 2008Q1

REPORT INFORMATION
  Report Type: 
  Country: None (occurrence: None)
  Receive Date: 20080211
  Receipt Date: 20080128
  Transmission Date: 20080703
  Serious: Yes (Hospitalization)
  Sender: FDA-Public Use
  Company Number: JP-AMGEN-US257883

PATIENT
  Sex: Female
  Weight: 55 kg

DRUGS (18)
  1. ENBREL [Suspect]
     Indication: RHEUMATOID ARTHRITIS
     Route: 058
     Dates: start: 20050621
  2. METHOTREXATE [Concomitant]
     Route: 048
     Dates: start: 20020901
  3. SULFASALAZINE [Concomitant]
     Indication: RHEUMATOID ARTHRITIS
     Dosage: NOT SPECIFIED
     Route: 048
     Dates: start: 20040601
  4. RHEUMATREX [Concomitant]
     Indication: RHEUMATOID ARTHRITIS
     Dosage: 2 MG; FREQUENCY NOT SPECIFIED
     Route: 048
  5. LOXONIN [Concomitant]
     Indication: RHEUMATOID ARTHRITIS
     Route: 048
  6. CYTOTEC [Concomitant]
     Indication: PROPHYLAXIS AGAINST GASTROINTESTINAL ULCER
     Route: 048
  7. PREDONINE [Concomitant]
     Indication: RHEUMATOID ARTHRITIS
     Route: 048
  8. RISEDRONATE SODIUM [Concomitant]
     Indication: OSTEOPOROSIS
     Route: 048
  9. MARZULENE S [Concomitant]
     Route: 048
  10. MAGNESIUM OXIDE [Concomitant]
     Indication: CONSTIPATION
     Route: 048
  11. SENNOSIDE A [Concomitant]
     Indication: CONSTIPATION
     Route: 048
  12. LITHIUM CARBONATE [Concomitant]
     Indication: DEPRESSION
     Route: 048
  13. ZOLPIDEM TARTRATE [Concomitant]
     Route: 048
  14. SILECE [Concomitant]
     Indication: DEPRESSION
     Route: 048
  15. PAXIL [Concomitant]
     Indication: DEPRESSION
     Dosage: 300 MG;FREQUENCY NOT SPECIFIED
     Route: 048
  16. SEPAZON [Concomitant]
     Indication: DEPRESSION
     Route: 048
  17. PREDNISOLONE [Concomitant]
     Indication: RHEUMATOID ARTHRITIS
     Dosage: 10 MG; FREQUENCY NOT SPECIFIED
     Route: 048
     Dates: start: 20020801
  18. PREDNISOLONE [Concomitant]
     Route: 048

REACTIONS (2)
  - ECTHYMA [None]
  - PYODERMA GANGRENOSUM [None]
